FAERS Safety Report 5871186-7 (Version None)
Quarter: 2008Q3

REPORT INFORMATION
  Report Type: 
  Country: None (occurrence: None)
  Receive Date: 20080829
  Receipt Date: 20080820
  Transmission Date: 20090109
  Serious: Yes (Hospitalization)
  Sender: FDA-Public Use
  Company Number: 2008BI013983

PATIENT
  Age: 63 Year
  Sex: Female

DRUGS (1)
  1. AVONEX [Suspect]
     Indication: MULTIPLE SCLEROSIS
     Dosage: 30 UG;QW;IM
     Route: 030
     Dates: start: 19980508

REACTIONS (6)
  - BONE NEOPLASM MALIGNANT [None]
  - MASS [None]
  - MULTIPLE MYELOMA [None]
  - PAIN [None]
  - SOFT TISSUE DISORDER [None]
  - SPINAL CORD COMPRESSION [None]
